FAERS Safety Report 8456743-6 (Version None)
Quarter: 2012Q2

REPORT INFORMATION
  Report Type: 
  Country: None (occurrence: None)
  Receive Date: 20120621
  Receipt Date: 20120613
  Transmission Date: 20120825
  Serious: Yes (Hospitalization, Other)
  Sender: FDA-Public Use
  Company Number: FR-ABBOTT-12P-056-0946033-00

PATIENT
  Age: 46 Year
  Sex: Male

DRUGS (4)
  1. VERCYTE [Suspect]
     Indication: POLYCYTHAEMIA VERA
     Route: 048
     Dates: start: 20100301
  2. DEPAKENE [Suspect]
     Indication: CONVULSION
     Dates: start: 20111001
  3. LORAZEPAM [Concomitant]
     Indication: PRODUCT USED FOR UNKNOWN INDICATION
  4. NEUROLPEPTIC DRUGS NOS [Suspect]
     Indication: PRODUCT USED FOR UNKNOWN INDICATION

REACTIONS (13)
  - CONVULSION [None]
  - HYPERSOMNIA [None]
  - HEADACHE [None]
  - FEELING ABNORMAL [None]
  - DELIRIUM [None]
  - DISTURBANCE IN ATTENTION [None]
  - PSYCHOTIC DISORDER [None]
  - SCHIZOPHRENIA [None]
  - ASTHENIA [None]
  - MENTAL DISORDER [None]
  - COGNITIVE DISORDER [None]
  - AMNESTIC DISORDER [None]
  - DEREALISATION [None]
